FAERS Safety Report 6334419-9 (Version None)
Quarter: 2009Q3

REPORT INFORMATION
  Report Type: 
  Country: None (occurrence: None)
  Receive Date: 20090827
  Receipt Date: 20090821
  Transmission Date: 20100115
  Serious: Yes (Hospitalization)
  Sender: FDA-Public Use
  Company Number: 2009PL000236

PATIENT
  Age: 84 Year
  Sex: Male

DRUGS (15)
  1. AZATHIOPRINE [Suspect]
     Indication: IDIOPATHIC PULMONARY FIBROSIS
     Dosage: 100 MG; QD
     Dates: start: 20090125
  2. PIRESPA (PIRENIDONE) MFR BY SHIONOGI (NO PREF. NAME) [Suspect]
     Indication: IDIOPATHIC PULMONARY FIBROSIS
     Dosage: 100 MG; QD
     Dates: start: 20090211, end: 20090326
  3. PREDNISOLONE [Concomitant]
  4. GARENOXACIN [Concomitant]
  5. SINGULAIR [Concomitant]
  6. FERROMIA /00023516/ [Concomitant]
  7. NIKORANMART [Concomitant]
  8. NELBON [Concomitant]
  9. TAKEPRON [Concomitant]
  10. BAKTAR [Concomitant]
  11. LASIX [Concomitant]
  12. CLEANAL [Concomitant]
  13. MUCOSTA [Concomitant]
  14. MAGLAX [Concomitant]
  15. LANIRAPID [Concomitant]

REACTIONS (9)
  - ABDOMINAL DISCOMFORT [None]
  - BLOOD CHLORIDE DECREASED [None]
  - BLOOD CREATININE INCREASED [None]
  - BLOOD UREA INCREASED [None]
  - DECREASED APPETITE [None]
  - HAEMATOCRIT DECREASED [None]
  - HAEMOGLOBIN DECREASED [None]
  - LOWER RESPIRATORY TRACT INFECTION [None]
  - RED BLOOD CELL COUNT DECREASED [None]
